FAERS Safety Report 23803458 (Version 1)
Quarter: 2024Q2

REPORT INFORMATION
  Report Type: Spontaneous
  Country: US (occurrence: None)
  Receive Date: 20240430
  Receipt Date: 20240430
  Transmission Date: 20240716
  Serious: No
  Sender: FDA-Public Use
  Company Number: None

PATIENT
  Age: 71 Year
  Sex: Male
  Weight: 88 kg

DRUGS (1)
  1. DOFETILIDE [Suspect]
     Active Substance: DOFETILIDE
     Dosage: FREQUENCY : TWICE A DAY;?
     Route: 048
     Dates: start: 20220826, end: 20220827

REACTIONS (3)
  - Electrocardiogram QT prolonged [None]
  - Oedema peripheral [None]
  - Cardiac failure congestive [None]

NARRATIVE: CASE EVENT DATE: 20220827
